FAERS Safety Report 19885337 (Version 1)
Quarter: 2021Q3

REPORT INFORMATION
  Report Type: Spontaneous
  Country: JP (occurrence: JP)
  Receive Date: 20210927
  Receipt Date: 20210927
  Transmission Date: 20211014
  Serious: Yes (Hospitalization)
  Sender: FDA-Public Use
  Company Number: JP-SA-2021SA314858

PATIENT
  Age: 7 Decade
  Sex: Male
  Weight: 59.4 kg

DRUGS (9)
  1. FENTANYL. [Concomitant]
     Active Substance: FENTANYL
     Dosage: TAPE (INCLUDING POULTICE)
  2. ELPLAT [Suspect]
     Active Substance: OXALIPLATIN
     Indication: RECTAL CANCER
     Dosage: INJECTION ONCE IN 2WEEKS
     Route: 041
  3. OXYCODONE [Concomitant]
     Active Substance: OXYCODONE
     Route: 048
  4. LEVOFOLINATE CALCIUM [Concomitant]
     Active Substance: LEVOLEUCOVORIN CALCIUM
  5. FLUOROURACIL. [Concomitant]
     Active Substance: FLUOROURACIL
  6. SODIUM RABEPRAZOLE [Concomitant]
     Active Substance: RABEPRAZOLE SODIUM
  7. FUROSEMIDE. [Concomitant]
     Active Substance: FUROSEMIDE
     Route: 048
  8. BEVACIZUMAB RECOMBINANT [Concomitant]
     Active Substance: BEVACIZUMAB
  9. SPIRONOLACTONE. [Concomitant]
     Active Substance: SPIRONOLACTONE
     Route: 048

REACTIONS (9)
  - Abdominal distension [Unknown]
  - Respiratory failure [Unknown]
  - Disseminated intravascular coagulation [Unknown]
  - Portal hypertension [Unknown]
  - Ascites [Unknown]
  - Oedema peripheral [Unknown]
  - Gastric varices [Unknown]
  - Gastric varices haemorrhage [Unknown]
  - Hepatic failure [Unknown]
